FAERS Safety Report 11109501 (Version 1)
Quarter: 2015Q2

REPORT INFORMATION
  Report Type: Spontaneous
  Country: US (occurrence: US)
  Receive Date: 20150513
  Receipt Date: 20150513
  Transmission Date: 20150821
  Serious: Yes (Other)
  Sender: FDA-Public Use
  Company Number: US-BAYER-2015-215534

PATIENT
  Sex: Female

DRUGS (1)
  1. MIRENA [Suspect]
     Active Substance: LEVONORGESTREL
     Dosage: UNK
     Route: 015

REACTIONS (6)
  - Drug ineffective [None]
  - Menstruation delayed [None]
  - Abortion spontaneous [None]
  - Off label use of device [None]
  - Pregnancy with contraceptive device [None]
  - Device dislocation [None]
